FAERS Safety Report 21814953 (Version 2)
Quarter: 2023Q1

REPORT INFORMATION
  Report Type: Report from Study
  Country: US (occurrence: US)
  Receive Date: 20230104
  Receipt Date: 20230105
  Transmission Date: 20230418
  Serious: Yes (Other)
  Sender: FDA-Public Use
  Company Number: US-ABBVIE-4256496

PATIENT
  Age: 33 Year
  Sex: Female

DRUGS (2)
  1. SKYRIZI [Suspect]
     Active Substance: RISANKIZUMAB-RZAA
     Indication: Psoriasis
     Route: 058
     Dates: start: 202210
  2. SKYRIZI [Suspect]
     Active Substance: RISANKIZUMAB-RZAA
     Indication: Psoriatic arthropathy

REACTIONS (11)
  - Seizure [Unknown]
  - Urticaria [Not Recovered/Not Resolved]
  - Migraine [Unknown]
  - Rash [Not Recovered/Not Resolved]
  - Injection site bruising [Not Recovered/Not Resolved]
  - Rash macular [Not Recovered/Not Resolved]
  - Chest discomfort [Not Recovered/Not Resolved]
  - Hypotension [Not Recovered/Not Resolved]
  - Throat tightness [Not Recovered/Not Resolved]
  - Dyspnoea [Not Recovered/Not Resolved]
  - Lethargy [Not Recovered/Not Resolved]

NARRATIVE: CASE EVENT DATE: 20221123
